FAERS Safety Report 25491790 (Version 1)
Quarter: 2025Q2

REPORT INFORMATION
  Report Type: Spontaneous
  Country: CA (occurrence: CA)
  Receive Date: 20250630
  Receipt Date: 20250630
  Transmission Date: 20250717
  Serious: Yes (Death, Life-Threatening, Hospitalization, Disabling, Congenital Anomaly, Other)
  Sender: Haleon PLC
  Company Number: CA-HALEON-2249319

PATIENT
  Age: 43 Year
  Sex: Female
  Weight: 68 kg

DRUGS (142)
  1. DICLOFENAC [Suspect]
     Active Substance: DICLOFENAC
     Indication: Product used for unknown indication
  2. DICLOFENAC POTASSIUM [Suspect]
     Active Substance: DICLOFENAC POTASSIUM
     Indication: Product used for unknown indication
  3. DICLOFENAC SODIUM [Suspect]
     Active Substance: DICLOFENAC SODIUM
     Indication: Product used for unknown indication
  4. DICLOFENAC SODIUM [Suspect]
     Active Substance: DICLOFENAC SODIUM
  5. DICLOFENAC SODIUM [Suspect]
     Active Substance: DICLOFENAC SODIUM
  6. DICLOFENAC SODIUM [Suspect]
     Active Substance: DICLOFENAC SODIUM
  7. HYDROCORTISONE [Suspect]
     Active Substance: HYDROCORTISONE
     Indication: Product used for unknown indication
  8. ADALIMUMAB [Suspect]
     Active Substance: ADALIMUMAB
     Indication: Rheumatoid arthritis
     Route: 058
  9. ADALIMUMAB [Suspect]
     Active Substance: ADALIMUMAB
     Indication: Rheumatoid arthritis
     Route: 058
  10. ADALIMUMAB [Suspect]
     Active Substance: ADALIMUMAB
     Route: 058
  11. ADALIMUMAB [Suspect]
     Active Substance: ADALIMUMAB
     Route: 058
  12. ADALIMUMAB [Suspect]
     Active Substance: ADALIMUMAB
     Route: 058
  13. ALENDRONIC ACID [Suspect]
     Active Substance: ALENDRONIC ACID
     Indication: Rheumatoid arthritis
  14. ALENDRONIC ACID [Suspect]
     Active Substance: ALENDRONIC ACID
  15. ALENDRONIC ACID [Suspect]
     Active Substance: ALENDRONIC ACID
  16. ALENDRONIC ACID [Suspect]
     Active Substance: ALENDRONIC ACID
  17. ALENDRONIC ACID [Suspect]
     Active Substance: ALENDRONIC ACID
  18. ALENDRONIC ACID [Suspect]
     Active Substance: ALENDRONIC ACID
  19. PANTOPRAZOLE SODIUM ANHYDROUS [Suspect]
     Active Substance: PANTOPRAZOLE SODIUM ANHYDROUS
     Indication: Product used for unknown indication
  20. PANTOPRAZOLE SODIUM ANHYDROUS [Suspect]
     Active Substance: PANTOPRAZOLE SODIUM ANHYDROUS
     Indication: Dyspepsia
  21. PANTOPRAZOLE SODIUM ANHYDROUS [Suspect]
     Active Substance: PANTOPRAZOLE SODIUM ANHYDROUS
     Dosage: ROUTE: UNKNOWN
  22. PANTOPRAZOLE SODIUM ANHYDROUS [Suspect]
     Active Substance: PANTOPRAZOLE SODIUM ANHYDROUS
  23. PANTOPRAZOLE SODIUM ANHYDROUS [Suspect]
     Active Substance: PANTOPRAZOLE SODIUM ANHYDROUS
  24. CANDESARTAN [Suspect]
     Active Substance: CANDESARTAN
     Indication: Migraine
  25. CETIRIZINE [Suspect]
     Active Substance: CETIRIZINE HYDROCHLORIDE
     Indication: Product used for unknown indication
  26. CETIRIZINE [Suspect]
     Active Substance: CETIRIZINE HYDROCHLORIDE
     Dosage: ROUTE: UNKNOWN
  27. CETIRIZINE [Suspect]
     Active Substance: CETIRIZINE HYDROCHLORIDE
     Dosage: ROUTE: UNKNOWN
  28. COSENTYX [Suspect]
     Active Substance: SECUKINUMAB
     Indication: Rheumatoid arthritis
  29. COSENTYX [Suspect]
     Active Substance: SECUKINUMAB
     Indication: Psoriatic arthropathy
  30. COSENTYX [Suspect]
     Active Substance: SECUKINUMAB
  31. DOMPERIDONE [Suspect]
     Active Substance: DOMPERIDONE
     Indication: Product used for unknown indication
     Dosage: ROUTE: UNKNOWN
  32. DOMPERIDONE MALEATE [Suspect]
     Active Substance: DOMPERIDONE MALEATE
     Indication: Product used for unknown indication
     Dosage: ROUTE: UNKNOWN
  33. FOLIC ACID [Suspect]
     Active Substance: FOLIC ACID
     Indication: Rheumatoid arthritis
  34. FOLIC ACID [Suspect]
     Active Substance: FOLIC ACID
  35. FOLIC ACID [Suspect]
     Active Substance: FOLIC ACID
     Dosage: ROUTE: UNKNOWN
  36. FOLIC ACID [Suspect]
     Active Substance: FOLIC ACID
  37. FOLIC ACID [Suspect]
     Active Substance: FOLIC ACID
  38. FOLIC ACID [Suspect]
     Active Substance: FOLIC ACID
  39. FOLIC ACID [Suspect]
     Active Substance: FOLIC ACID
  40. FOLIC ACID [Suspect]
     Active Substance: FOLIC ACID
  41. FOLIC ACID [Suspect]
     Active Substance: FOLIC ACID
  42. FOLIC ACID [Suspect]
     Active Substance: FOLIC ACID
  43. FOLIC ACID [Suspect]
     Active Substance: FOLIC ACID
  44. FOLIC ACID [Suspect]
     Active Substance: FOLIC ACID
  45. FOLIC ACID [Suspect]
     Active Substance: FOLIC ACID
  46. FOLIC ACID [Suspect]
     Active Substance: FOLIC ACID
  47. FOLIC ACID [Suspect]
     Active Substance: FOLIC ACID
  48. FOLIC ACID [Suspect]
     Active Substance: FOLIC ACID
  49. FOLIC ACID [Suspect]
     Active Substance: FOLIC ACID
  50. FOLIC ACID [Suspect]
     Active Substance: FOLIC ACID
  51. FOLIC ACID [Suspect]
     Active Substance: FOLIC ACID
  52. FOLIC ACID [Suspect]
     Active Substance: FOLIC ACID
  53. FOLIC ACID [Suspect]
     Active Substance: FOLIC ACID
  54. FOLIC ACID [Suspect]
     Active Substance: FOLIC ACID
  55. FOLIC ACID [Suspect]
     Active Substance: FOLIC ACID
  56. LEFLUNOMIDE [Suspect]
     Active Substance: LEFLUNOMIDE
     Indication: Rheumatoid arthritis
     Dosage: ROUTE: UNKNOWN
  57. LEFLUNOMIDE [Suspect]
     Active Substance: LEFLUNOMIDE
     Dosage: ROUTE: ORAL
  58. LEFLUNOMIDE [Suspect]
     Active Substance: LEFLUNOMIDE
  59. LEFLUNOMIDE [Suspect]
     Active Substance: LEFLUNOMIDE
  60. LEFLUNOMIDE [Suspect]
     Active Substance: LEFLUNOMIDE
     Dosage: ROUTE: UNKNOWN
  61. LEFLUNOMIDE [Suspect]
     Active Substance: LEFLUNOMIDE
  62. LEFLUNOMIDE [Suspect]
     Active Substance: LEFLUNOMIDE
     Dosage: ROUTE: UNKNOWN
  63. NAPROXEN [Suspect]
     Active Substance: NAPROXEN
     Indication: Product used for unknown indication
  64. NAPROXEN [Suspect]
     Active Substance: NAPROXEN
  65. QUETIAPINE FUMARATE [Suspect]
     Active Substance: QUETIAPINE FUMARATE
     Indication: Product used for unknown indication
  66. QUETIAPINE FUMARATE [Suspect]
     Active Substance: QUETIAPINE FUMARATE
  67. TOPIRAMATE [Suspect]
     Active Substance: TOPIRAMATE
     Indication: Product used for unknown indication
     Dosage: ROUTE: UNKNOWN
  68. TOPIRAMATE [Suspect]
     Active Substance: TOPIRAMATE
     Dosage: ROUTE: UNKNOWN
  69. CORTISONE [Suspect]
     Active Substance: CORTISONE
     Indication: Product used for unknown indication
  70. CORTISONE [Suspect]
     Active Substance: CORTISONE
     Dosage: ROUTE: UNKNOWN
  71. CORTISONE [Suspect]
     Active Substance: CORTISONE
  72. CORTISONE [Suspect]
     Active Substance: CORTISONE
  73. DOMPERIDONE [Suspect]
     Active Substance: DOMPERIDONE
     Indication: Product used for unknown indication
     Dosage: ROUTE: UNKNOWN
  74. ERELZI [Suspect]
     Active Substance: ETANERCEPT-SZZS
     Indication: Rheumatoid arthritis
  75. ERELZI [Suspect]
     Active Substance: ETANERCEPT-SZZS
  76. ERELZI [Suspect]
     Active Substance: ETANERCEPT-SZZS
     Dosage: ROUTE: UNKNOWN
  77. ERENUMAB [Suspect]
     Active Substance: ERENUMAB
     Indication: Migraine
  78. HYDROCORTISONE SODIUM PHOSPHATE [Suspect]
     Active Substance: HYDROCORTISONE SODIUM PHOSPHATE
     Indication: Rheumatoid arthritis
  79. LAMICTAL [Suspect]
     Active Substance: LAMOTRIGINE
     Indication: Product used for unknown indication
     Route: 048
  80. METHOTREXATE [Suspect]
     Active Substance: METHOTREXATE
     Indication: Rheumatoid arthritis
  81. METHOTREXATE [Suspect]
     Active Substance: METHOTREXATE
     Indication: Psoriatic arthropathy
  82. METHOTREXATE [Suspect]
     Active Substance: METHOTREXATE
     Dosage: ROUTE: ORAL
  83. METHOTREXATE [Suspect]
     Active Substance: METHOTREXATE
  84. METHOTREXATE [Suspect]
     Active Substance: METHOTREXATE
     Dosage: ROUTE: SUBCUTANEOUS
  85. METHOTREXATE [Suspect]
     Active Substance: METHOTREXATE
  86. METHOTREXATE [Suspect]
     Active Substance: METHOTREXATE
  87. METHOTREXATE [Suspect]
     Active Substance: METHOTREXATE
     Dosage: ROUTE: INTRA-ARTERIAL
  88. METHOTREXATE [Suspect]
     Active Substance: METHOTREXATE
  89. METHOTREXATE [Suspect]
     Active Substance: METHOTREXATE
  90. METHOTREXATE [Suspect]
     Active Substance: METHOTREXATE
  91. METHOTREXATE [Suspect]
     Active Substance: METHOTREXATE
     Dosage: ROUTE: INTRA-ARTERIAL
  92. METHOTREXATE [Suspect]
     Active Substance: METHOTREXATE
     Dosage: ROUTE: ORAL
  93. METHOTREXATE [Suspect]
     Active Substance: METHOTREXATE
     Dosage: ROUTE: ORAL
  94. METHOTREXATE [Suspect]
     Active Substance: METHOTREXATE
  95. METHOTREXATE [Suspect]
     Active Substance: METHOTREXATE
     Dosage: ROUTE: ORAL
  96. METHOTREXATE [Suspect]
     Active Substance: METHOTREXATE
  97. METHOTREXATE [Suspect]
     Active Substance: METHOTREXATE
     Dosage: ROUTE: SUBCUTANEOUS
  98. METHOTREXATE [Suspect]
     Active Substance: METHOTREXATE
  99. METHOTREXATE [Suspect]
     Active Substance: METHOTREXATE
  100. METHOTREXATE [Suspect]
     Active Substance: METHOTREXATE
  101. METHOTREXATE [Suspect]
     Active Substance: METHOTREXATE
  102. METHOTREXATE [Suspect]
     Active Substance: METHOTREXATE
  103. METHOTREXATE [Suspect]
     Active Substance: METHOTREXATE
     Dosage: ROUTE: ORAL
  104. METHOTREXATE [Suspect]
     Active Substance: METHOTREXATE
  105. METHOTREXATE [Suspect]
     Active Substance: METHOTREXATE
  106. METHOTREXATE [Suspect]
     Active Substance: METHOTREXATE
  107. METHOTREXATE [Suspect]
     Active Substance: METHOTREXATE
     Dosage: ROUTE: ORAL
  108. METHOTREXATE [Suspect]
     Active Substance: METHOTREXATE
  109. METHOTREXATE [Suspect]
     Active Substance: METHOTREXATE
  110. METHOTREXATE [Suspect]
     Active Substance: METHOTREXATE
     Dosage: ROUTE: UNKNOWN
  111. METHOTREXATE [Suspect]
     Active Substance: METHOTREXATE
     Dosage: ROUTE: UNKNOWN
  112. METHOTREXATE [Suspect]
     Active Substance: METHOTREXATE
     Dosage: ROUTE: ORAL
  113. METHOTREXATE [Suspect]
     Active Substance: METHOTREXATE
     Dosage: ROUTE: ORAL
  114. METHOTREXATE [Suspect]
     Active Substance: METHOTREXATE
  115. METHOTREXATE [Suspect]
     Active Substance: METHOTREXATE
     Dosage: ROUTE: ORAL
  116. METHOTREXATE [Suspect]
     Active Substance: METHOTREXATE
     Dosage: ROUTE: ORAL
  117. METHOTREXATE [Suspect]
     Active Substance: METHOTREXATE
     Dosage: ROUTE: UNKNOWN
  118. METHOTREXATE [Suspect]
     Active Substance: METHOTREXATE
  119. METHOTREXATE [Suspect]
     Active Substance: METHOTREXATE
     Dosage: ROUTE: INTRA-ARTERIAL
  120. METHOTREXATE [Suspect]
     Active Substance: METHOTREXATE
     Dosage: ROUTE: ORAL
  121. METHOTREXATE [Suspect]
     Active Substance: METHOTREXATE
     Dosage: ROUTE: ORAL
  122. METHOTREXATE [Suspect]
     Active Substance: METHOTREXATE
     Dosage: ROUTE: ORAL
  123. METHOTREXATE [Suspect]
     Active Substance: METHOTREXATE
     Dosage: ROUTE: UNKNOWN
  124. METHOTREXATE [Suspect]
     Active Substance: METHOTREXATE
  125. METHOTREXATE [Suspect]
     Active Substance: METHOTREXATE
     Dosage: ROUTE: UNKNOWN
  126. METHOTREXATE [Suspect]
     Active Substance: METHOTREXATE
     Dosage: ROUTE: UNKNOWN
  127. METHOTREXATE [Suspect]
     Active Substance: METHOTREXATE
     Dosage: ROUTE: ORAL
  128. METHOTREXATE [Suspect]
     Active Substance: METHOTREXATE
  129. METHOTREXATE [Suspect]
     Active Substance: METHOTREXATE
  130. MYCOPHENOLATE MOFETIL [Suspect]
     Active Substance: MYCOPHENOLATE MOFETIL
     Indication: Product used for unknown indication
  131. OXYCODONE HYDROCHLORIDE [Suspect]
     Active Substance: OXYCODONE HYDROCHLORIDE
     Indication: Product used for unknown indication
  132. RITUXIMAB [Suspect]
     Active Substance: RITUXIMAB
     Indication: Product used for unknown indication
     Route: 043
  133. RITUXIMAB [Suspect]
     Active Substance: RITUXIMAB
     Indication: Product used for unknown indication
  134. RITUXIMAB [Suspect]
     Active Substance: RITUXIMAB
  135. RITUXIMAB [Suspect]
     Active Substance: RITUXIMAB
  136. RITUXIMAB [Suspect]
     Active Substance: RITUXIMAB
  137. RITUXIMAB [Suspect]
     Active Substance: RITUXIMAB
  138. RITUXIMAB [Suspect]
     Active Substance: RITUXIMAB
  139. RITUXIMAB [Suspect]
     Active Substance: RITUXIMAB
  140. RITUXIMAB [Suspect]
     Active Substance: RITUXIMAB
  141. RITUXIMAB [Suspect]
     Active Substance: RITUXIMAB
  142. TRAZODONE [Suspect]
     Active Substance: TRAZODONE HYDROCHLORIDE
     Indication: Product used for unknown indication
     Dosage: ROUTE: UNKNOWN

REACTIONS (30)
  - Systemic lupus erythematosus [Fatal]
  - Breast cancer stage III [Fatal]
  - Intentional product use issue [Fatal]
  - Joint range of motion decreased [Fatal]
  - Live birth [Fatal]
  - Maternal exposure during pregnancy [Fatal]
  - Pemphigus [Fatal]
  - Pericarditis [Fatal]
  - Rash [Fatal]
  - Swelling [Fatal]
  - Synovitis [Fatal]
  - Type 2 diabetes mellitus [Fatal]
  - Wound [Fatal]
  - Vomiting [Fatal]
  - Wheezing [Fatal]
  - Wound infection [Fatal]
  - Abdominal discomfort [Fatal]
  - Alopecia [Fatal]
  - Anti-cyclic citrullinated peptide antibody positive [Fatal]
  - Arthralgia [Fatal]
  - Blister [Fatal]
  - Depression [Fatal]
  - Diarrhoea [Fatal]
  - Drug intolerance [Fatal]
  - Duodenal ulcer perforation [Fatal]
  - Fibromyalgia [Fatal]
  - General physical health deterioration [Fatal]
  - Glossodynia [Fatal]
  - Hand deformity [Fatal]
  - Helicobacter infection [Fatal]
